FAERS Safety Report 14274233 (Version 1)
Quarter: 2017Q4

REPORT INFORMATION
  Report Type: Spontaneous
  Country: DE (occurrence: DE)
  Receive Date: 20171211
  Receipt Date: 20171211
  Transmission Date: 20180321
  Serious: Yes (Death, Hospitalization, Other)
  Sender: FDA-Public Use
  Company Number: DE-OTSUKA-DJ20061311

PATIENT
  Age: 42 Year
  Sex: Female

DRUGS (10)
  1. GLIANIMON [Suspect]
     Active Substance: BENPERIDOL
     Indication: SCHIZOAFFECTIVE DISORDER
     Dosage: 24 MG, UNK
     Route: 065
     Dates: start: 20060623, end: 20060628
  2. LAMOTRIGINE. [Concomitant]
     Active Substance: LAMOTRIGINE
     Indication: PRODUCT USED FOR UNKNOWN INDICATION
     Dosage: 400 MG, QD
     Route: 065
     Dates: start: 20060623
  3. APONAL [Concomitant]
     Active Substance: DOXEPIN HYDROCHLORIDE
     Indication: DEPRESSION
     Route: 065
     Dates: start: 20060627, end: 20060701
  4. AKINETON-1 [Concomitant]
     Indication: EXTRAPYRAMIDAL DISORDER
     Route: 065
     Dates: start: 20060626, end: 20060627
  5. ABILIFY [Suspect]
     Active Substance: ARIPIPRAZOLE
     Indication: SCHIZOAFFECTIVE DISORDER
     Dosage: 5 MG, UNK
     Route: 048
     Dates: start: 20060626, end: 20060628
  6. ABILIFY [Suspect]
     Active Substance: ARIPIPRAZOLE
     Indication: IMPULSE-CONTROL DISORDER
  7. GLIANIMON [Suspect]
     Active Substance: BENPERIDOL
     Indication: DELUSION
  8. LAMICTAL [Concomitant]
     Active Substance: LAMOTRIGINE
     Indication: PRODUCT USED FOR UNKNOWN INDICATION
     Dosage: 200 MG, UNK
     Route: 065
     Dates: start: 20060623
  9. ABILIFY [Suspect]
     Active Substance: ARIPIPRAZOLE
     Indication: DEPRESSIVE DELUSION
     Dosage: 10 MG, UNK
     Route: 048
     Dates: start: 20060629, end: 20060701
  10. GLIANIMON [Suspect]
     Active Substance: BENPERIDOL
     Indication: DEPRESSIVE DELUSION

REACTIONS (12)
  - Hypovolaemia [Unknown]
  - Dehydration [Unknown]
  - Coma [Not Recovered/Not Resolved]
  - Pulmonary artery thrombosis [Fatal]
  - Gastroenteritis [Unknown]
  - Neuroleptic malignant syndrome [Fatal]
  - Circulatory collapse [Unknown]
  - Cardiac arrest [Unknown]
  - Brain death [Fatal]
  - Ileus paralytic [Unknown]
  - Leukocytosis [Unknown]
  - Blood creatine phosphokinase increased [Unknown]

NARRATIVE: CASE EVENT DATE: 20060627
